FAERS Safety Report 4804479-2 (Version None)
Quarter: 2005Q4

REPORT INFORMATION
  Report Type: 
  Country: None (occurrence: None)
  Receive Date: 20051018
  Receipt Date: 20051018
  Transmission Date: 20060501
  Serious: Yes (Hospitalization)
  Sender: FDA-Public Use
  Company Number: None

PATIENT
  Sex: Male

DRUGS (4)
  1. CYTOXAN [Suspect]
     Dosage: DAY 1 OF A 21 DAYS CYCLE
  2. DOXORUBICIN [Suspect]
     Dosage: DAY 1 OF A 21 DAYS CYCLE
  3. VINCRISTINE [Suspect]
     Dosage: DAY 1 OF A 21 DAYS CYCLE
  4. PREDNISONE TAB [Suspect]
     Dosage: DAY 1 OF A 21 DAYS CYCLE

REACTIONS (5)
  - BLOOD SODIUM DECREASED [None]
  - DEHYDRATION [None]
  - FATIGUE [None]
  - MALAISE [None]
  - MUCOSAL INFLAMMATION [None]
